FAERS Safety Report 6992442-5 (Version None)
Quarter: 2010Q3

REPORT INFORMATION
  Report Type: 
  Country: None (occurrence: None)
  Receive Date: 20100917
  Receipt Date: 20100908
  Transmission Date: 20110219
  Serious: Yes (Hospitalization)
  Sender: FDA-Public Use
  Company Number: PHHY2010CH59265

PATIENT
  Age: 82 Year
  Sex: Female

DRUGS (1)
  1. TRILEPTAL [Suspect]
     Indication: RESTLESS LEGS SYNDROME
     Dosage: UNK
     Dates: start: 20100424, end: 20100606

REACTIONS (8)
  - BLOOD PRESSURE INCREASED [None]
  - CIRCULATORY COLLAPSE [None]
  - COMA SCALE ABNORMAL [None]
  - HYPONATRAEMIA [None]
  - INAPPROPRIATE ANTIDIURETIC HORMONE SECRETION [None]
  - MUSCLE TWITCHING [None]
  - SOMNOLENCE [None]
  - VOMITING [None]
